FAERS Safety Report 8157222-6 (Version None)
Quarter: 2012Q1

REPORT INFORMATION
  Report Type: 
  Country: None (occurrence: None)
  Receive Date: 20120222
  Receipt Date: 20120222
  Transmission Date: 20120608
  Serious: Yes (Hospitalization, Other)
  Sender: FDA-Public Use
  Company Number: None

PATIENT
  Age: 13 Year
  Sex: Male
  Weight: 90.718 kg

DRUGS (2)
  1. LATUDA [Suspect]
     Indication: OBSESSIVE-COMPULSIVE DISORDER
     Dosage: 40 MG
     Dates: start: 20120125, end: 20120131
  2. LATUDA [Suspect]
     Indication: AUTISM
     Dosage: 40 MG
     Dates: start: 20120125, end: 20120131

REACTIONS (5)
  - SUICIDAL IDEATION [None]
  - DIARRHOEA [None]
  - APHASIA [None]
  - DEPRESSION [None]
  - MUSCULOSKELETAL STIFFNESS [None]
